FAERS Safety Report 9764629 (Version 1)
Quarter: 2013Q4

REPORT INFORMATION
  Report Type: Spontaneous
  Country: FR (occurrence: FR)
  Receive Date: 20131217
  Receipt Date: 20131217
  Transmission Date: 20140711
  Serious: Yes (Life-Threatening, Hospitalization)
  Sender: FDA-Public Use
  Company Number: FR-ROCHE-1320559

PATIENT
  Age: 56 Year
  Sex: Male

DRUGS (6)
  1. ROCEPHINE [Suspect]
     Indication: BRAIN ABSCESS
     Route: 042
     Dates: start: 20131027, end: 20131029
  2. ADIAZINE [Suspect]
     Indication: CEREBRAL TOXOPLASMOSIS
     Dosage: TREATMENT DURATION= 13 DAYS
     Route: 048
     Dates: start: 20131018, end: 20131030
  3. MALOCIDE [Concomitant]
     Indication: CEREBRAL TOXOPLASMOSIS
     Route: 048
     Dates: start: 20131018
  4. LOVENOX [Concomitant]
     Indication: PULMONARY EMBOLISM
     Route: 058
     Dates: start: 20131018, end: 20131104
  5. FLAGYL [Concomitant]
     Indication: BRAIN ABSCESS
     Route: 042
     Dates: start: 20131027, end: 20131029
  6. DALACINE [Concomitant]
     Route: 065

REACTIONS (4)
  - Tubulointerstitial nephritis [Recovering/Resolving]
  - Diarrhoea [Recovering/Resolving]
  - Liver disorder [Recovering/Resolving]
  - Rash [Recovering/Resolving]
